FAERS Safety Report 8415031-4 (Version None)
Quarter: 2012Q2

REPORT INFORMATION
  Report Type: 
  Country: None (occurrence: None)
  Receive Date: 20120606
  Receipt Date: 20120525
  Transmission Date: 20120825
  Serious: Yes (Other)
  Sender: FDA-Public Use
  Company Number: CA-JNJFOC-20120519605

PATIENT
  Sex: Female

DRUGS (7)
  1. REMICADE [Suspect]
     Indication: CROHN'S DISEASE
     Route: 042
     Dates: start: 20100504
  2. IMURAN [Concomitant]
     Route: 065
  3. VITAMIN D W/ CALCIUM [Concomitant]
     Route: 065
  4. AVAPRO [Concomitant]
     Dosage: DOSE 15 (UNITS UNSPECIFIED)
     Route: 065
  5. CYCLOBENZAPRINE [Concomitant]
     Route: 048
  6. ATASOL [Concomitant]
     Dosage: AS NEEDED
     Route: 065
  7. VITAMIN B-12 [Concomitant]
     Route: 065

REACTIONS (2)
  - BACK PAIN [None]
  - FALL [None]
